FAERS Safety Report 9840240 (Version 1)
Quarter: 2014Q1

REPORT INFORMATION
  Report Type: Report from Study
  Country: CR (occurrence: CR)
  Receive Date: 20140124
  Receipt Date: 20140124
  Transmission Date: 20141002
  Serious: Yes (Hospitalization)
  Sender: FDA-Public Use
  Company Number: CR-ROCHE-1338487

PATIENT
  Age: 66 Year
  Sex: Female

DRUGS (3)
  1. BONVIVA [Suspect]
     Indication: OSTEOPOROSIS
     Route: 048
     Dates: start: 20071101
  2. VASTAREL [Concomitant]
     Indication: CARDIOVASCULAR EVENT PROPHYLAXIS
  3. DOXIUM [Concomitant]
     Indication: CARDIOVASCULAR EVENT PROPHYLAXIS

REACTIONS (2)
  - Femur fracture [Recovering/Resolving]
  - Fall [Unknown]
